FAERS Safety Report 24761002 (Version 1)
Quarter: 2024Q4

REPORT INFORMATION
  Report Type: Spontaneous
  Country: IT (occurrence: IT)
  Receive Date: 20241220
  Receipt Date: 20241220
  Transmission Date: 20250115
  Serious: Yes (Death)
  Sender: NOVARTIS
  Company Number: IT-002147023-NVSC2024IT240972

PATIENT
  Age: 63 Year
  Sex: Female

DRUGS (1)
  1. IMATINIB [Suspect]
     Active Substance: IMATINIB
     Indication: Mastocytic leukaemia
     Dosage: UNK, FOR 6 MONTHS
     Route: 065

REACTIONS (3)
  - Mastocytic leukaemia [Fatal]
  - Malignant neoplasm progression [Fatal]
  - Drug ineffective [Unknown]
